FAERS Safety Report 4781328-2 (Version None)
Quarter: 2005Q3

REPORT INFORMATION
  Report Type: 
  Country: None (occurrence: None)
  Receive Date: 20050914
  Receipt Date: 20050719
  Transmission Date: 20060218
  Serious: No
  Sender: FDA-Public Use
  Company Number: IND-AE-05-SAN-042

PATIENT
  Age: 70 Year
  Sex: Female
  Weight: 63.5036 kg

DRUGS (5)
  1. SANCTURA [Suspect]
     Indication: HYPERTONIC BLADDER
     Dosage: 20MG BID; ORAL
     Route: 048
     Dates: start: 20050627
  2. METFORMIN [Concomitant]
  3. AVAPRO [Concomitant]
  4. PREMARIN [Concomitant]
  5. PROVERA [Concomitant]

REACTIONS (2)
  - HEART RATE DECREASED [None]
  - HEART RATE INCREASED [None]
